FAERS Safety Report 9153798 (Version 1)
Quarter: 2013Q1

REPORT INFORMATION
  Report Type: Spontaneous
  Country: US (occurrence: None)
  Receive Date: 20130219
  Receipt Date: 20130219
  Transmission Date: 20140127
  Serious: Yes (Other)
  Sender: FDA-Public Use
  Company Number: TPA2012A11950

PATIENT
  Age: 73 Year
  Sex: Male
  Weight: 105.69 kg

DRUGS (4)
  1. ACTOS [Suspect]
     Indication: TYPE 2 DIABETES MELLITUS
     Dates: start: 20001205, end: 20060124
  2. LANTUS (INSULIN GLARGINE) [Concomitant]
  3. GLUCOTROL (GLIPIZIDE) [Concomitant]
  4. NOVOLIN (INSULIN HUMAN, INSULIN HUMAN INJECTION, ISOPHANE) [Concomitant]

REACTIONS (2)
  - Bladder cancer [None]
  - Prostate cancer [None]
